FAERS Safety Report 6427658-X (Version None)
Quarter: 2009Q4

REPORT INFORMATION
  Report Type: 
  Country: None (occurrence: None)
  Receive Date: 20091104
  Receipt Date: 20091026
  Transmission Date: 20100525
  Serious: Yes (Hospitalization, Other)
  Sender: FDA-Public Use
  Company Number: US-JNJFOC-20091008397

PATIENT
  Sex: Female
  Weight: 68.04 kg

DRUGS (18)
  1. FENTANYL TRANSDERMAL SYSTEM [Suspect]
     Route: 062
  2. FENTANYL TRANSDERMAL SYSTEM [Suspect]
     Indication: ARTHRALGIA
     Route: 062
  3. XANAX [Concomitant]
     Indication: NEUROPATHY PERIPHERAL
     Route: 048
  4. ELAVIL [Concomitant]
     Indication: SLEEP DISORDER
     Route: 048
  5. FLEXERIL [Concomitant]
     Indication: MUSCLE SPASMS
     Dosage: AS NEEDED
     Route: 048
  6. LOMOTIL [Concomitant]
     Indication: DIARRHOEA
     Route: 048
  7. DOLGIC PLUS [Concomitant]
     Indication: MIGRAINE
     Route: 048
  8. NEURONTIN [Concomitant]
     Indication: DIABETIC NEUROPATHY
     Route: 048
  9. PREMARIN [Concomitant]
     Indication: HORMONE LEVEL ABNORMAL
     Route: 048
  10. LEVSIN [Concomitant]
     Indication: ABDOMINAL PAIN
     Route: 048
  11. MAGNESIUM OXIDE [Concomitant]
     Indication: MUSCLE SPASMS
     Route: 048
  12. METFORMIN [Concomitant]
     Indication: DIABETES MELLITUS
     Route: 048
  13. PHENERGAN HCL [Concomitant]
     Indication: NAUSEA
     Route: 048
  14. PROCHLORPERAZINE [Concomitant]
     Indication: NAUSEA
     Route: 048
  15. PROTONIX [Concomitant]
     Indication: GASTROOESOPHAGEAL REFLUX DISEASE
     Route: 048
  16. RESTASIS [Concomitant]
     Indication: GLAUCOMA
     Dosage: (0.05%) 2 DROPS IN EACH EYE
     Route: 047
  17. XALATAN [Concomitant]
     Indication: GLAUCOMA
     Dosage: (0.005%) 2 DROPS IN EACH EYE
     Route: 047
  18. VITAMIN D [Concomitant]
     Indication: VITAMIN D DEFICIENCY
     Dosage: 50,000 UNITS
     Route: 048

REACTIONS (9)
  - ANXIETY [None]
  - ARTHRALGIA [None]
  - BACK PAIN [None]
  - BLADDER PROLAPSE [None]
  - BLOOD CHOLESTEROL INCREASED [None]
  - GASTROINTESTINAL DISORDER [None]
  - WEIGHT DECREASED [None]
  - WEIGHT INCREASED [None]
  - WRONG TECHNIQUE IN DRUG USAGE PROCESS [None]
